FAERS Safety Report 17868091 (Version 1)
Quarter: 2020Q2

REPORT INFORMATION
  Report Type: Report from Study
  Country: None (occurrence: US)
  Receive Date: 20200605
  Receipt Date: 20200605
  Transmission Date: 20200714
  Serious: Yes (Other)
  Sender: FDA-Public Use
  Company Number: US-ABBVIE-20K-163-3426491-00

PATIENT
  Sex: Female

DRUGS (2)
  1. ORILISSA [Suspect]
     Active Substance: ELAGOLIX SODIUM
     Indication: PRODUCT USED FOR UNKNOWN INDICATION
     Route: 048
     Dates: start: 20200422
  2. LUPRON [Suspect]
     Active Substance: LEUPROLIDE ACETATE
     Indication: PRODUCT USED FOR UNKNOWN INDICATION
     Route: 065

REACTIONS (5)
  - Scar excision [Recovering/Resolving]
  - Drug ineffective [Recovering/Resolving]
  - Hysterectomy [Recovering/Resolving]
  - Wrong technique in product usage process [Unknown]
  - Salpingo-oophorectomy bilateral [Recovering/Resolving]

NARRATIVE: CASE EVENT DATE: 2020
